FAERS Safety Report 6814930-4 (Version None)
Quarter: 2010Q3

REPORT INFORMATION
  Report Type: 
  Country: None (occurrence: None)
  Receive Date: 20100702
  Receipt Date: 20100624
  Transmission Date: 20110219
  Serious: Yes (Hospitalization)
  Sender: FDA-Public Use
  Company Number: CO-MILLENNIUM PHARMACEUTICALS, INC.-2010-03231

PATIENT

DRUGS (2)
  1. VELCADE [Suspect]
     Indication: MANTLE CELL LYMPHOMA
     Dosage: 2 MG, CYCLIC
     Route: 065
     Dates: start: 20091201, end: 20100525
  2. DEXAMETHASONE [Concomitant]
     Dosage: UNK

REACTIONS (7)
  - ATAXIA [None]
  - CEREBROVASCULAR DISORDER [None]
  - COMA [None]
  - DYSARTHRIA [None]
  - GAIT DISTURBANCE [None]
  - INJECTION SITE ERYTHEMA [None]
  - MUSCLE ATROPHY [None]
